FAERS Safety Report 8259211-X (Version None)
Quarter: 2012Q2

REPORT INFORMATION
  Report Type: 
  Country: None (occurrence: None)
  Receive Date: 20120403
  Receipt Date: 20120403
  Transmission Date: 20120825
  Serious: Yes (Life-Threatening, Hospitalization)
  Sender: FDA-Public Use
  Company Number: None

PATIENT
  Sex: Female
  Weight: 76.2043 kg

DRUGS (3)
  1. PEGASYS [Concomitant]
  2. INCIVEX [Suspect]
     Indication: HEPATITIS C
     Dosage: 375 MG X 2 TID ORAL
     Route: 048
     Dates: start: 20110728, end: 20110815
  3. RUBAVIRIN [Concomitant]

REACTIONS (7)
  - OXYGEN SATURATION DECREASED [None]
  - BLOOD URIC ACID INCREASED [None]
  - ANAEMIA [None]
  - RESPIRATORY DISORDER [None]
  - CHEST PAIN [None]
  - FATIGUE [None]
  - PNEUMONIA PRIMARY ATYPICAL [None]
